FAERS Safety Report 5284416-X (Version None)
Quarter: 2007Q2

REPORT INFORMATION
  Report Type: 
  Country: None (occurrence: None)
  Receive Date: 20070403
  Receipt Date: 20070326
  Transmission Date: 20071010
  Serious: Yes (Hospitalization)
  Sender: FDA-Public Use
  Company Number: HQWYE926127MAR07

PATIENT
  Age: 70 Year
  Sex: Male

DRUGS (5)
  1. IBUPROFEN [Suspect]
     Indication: ARTHRALGIA
     Dosage: UNKNOWN
     Route: 065
     Dates: end: 20070129
  2. DABIGATRAN ETEXILATE [Suspect]
     Dosage: UNKNOWN
     Route: 065
  3. LISINOPRIL [Concomitant]
     Dosage: UNKNOWN
     Route: 065
  4. CYANOCOBALAMIN [Concomitant]
     Dosage: UNKNOWN
     Route: 065
  5. OMEPRAZOLE [Concomitant]
     Dosage: UNKNOWN
     Route: 065

REACTIONS (3)
  - ATRIAL FIBRILLATION [None]
  - GASTROINTESTINAL HAEMORRHAGE [None]
  - PNEUMONIA [None]
